FAERS Safety Report 7080998-6 (Version None)
Quarter: 2010Q4

REPORT INFORMATION
  Report Type: 
  Country: None (occurrence: None)
  Receive Date: 20101102
  Receipt Date: 20101102
  Transmission Date: 20110411
  Serious: No
  Sender: FDA-Public Use
  Company Number: None

PATIENT
  Age: 2 Year
  Sex: Female
  Weight: 11.3399 kg

DRUGS (1)
  1. HP HUMPH TEETH 135C [Suspect]
     Indication: TEETHING
     Dosage: 1 TABLET ONCE
     Dates: start: 20100928, end: 20100928

REACTIONS (4)
  - CRYING [None]
  - FATIGUE [None]
  - HALLUCINATION [None]
  - LETHARGY [None]
